FAERS Safety Report 26196671 (Version 1)
Quarter: 2025Q4

REPORT INFORMATION
  Report Type: Spontaneous
  Country: GB (occurrence: GB)
  Receive Date: 20251224
  Receipt Date: 20251224
  Transmission Date: 20260118
  Serious: Yes (Other)
  Sender: DR REDDYS
  Company Number: None

PATIENT
  Age: 66 Year
  Sex: Female
  Weight: 56 kg

DRUGS (2)
  1. CAPECITABINE\OXALIPLATIN [Suspect]
     Active Substance: CAPECITABINE\OXALIPLATIN
     Indication: Neoplasm malignant
     Dates: start: 20251013
  2. CAPECITABINE\OXALIPLATIN [Suspect]
     Active Substance: CAPECITABINE\OXALIPLATIN
     Indication: Neoplasm malignant
     Dates: start: 20251013

REACTIONS (3)
  - Chest pain [Not Recovered/Not Resolved]
  - Arterial spasm [Unknown]
  - Chest discomfort [Unknown]

NARRATIVE: CASE EVENT DATE: 20251017
